FAERS Safety Report 5119945-2 (Version None)
Quarter: 2006Q3

REPORT INFORMATION
  Report Type: 
  Country: None (occurrence: None)
  Receive Date: 20060928
  Receipt Date: 20060922
  Transmission Date: 20061208
  Serious: Yes (Death, Life-Threatening, Hospitalization)
  Sender: FDA-Public Use
  Company Number: HQWYE096502MAR06

PATIENT
  Age: 66 Year
  Sex: Male

DRUGS (14)
  1. MYLOTARG [Suspect]
     Indication: ACUTE MYELOID LEUKAEMIA RECURRENT
     Dosage: A SINGLE 9 MG/M^2 DOSE INTRAVENOUS DRIP
     Route: 041
     Dates: start: 20051118, end: 20051118
  2. MYLOTARG [Suspect]
     Indication: ACUTE MYELOID LEUKAEMIA RECURRENT
     Dosage: A SINGLE 9 MG/M^2 DOSE INTRAVENOUS DRIP
     Route: 041
     Dates: start: 20051202, end: 20051202
  3. CYTARABINE [Suspect]
     Indication: ACUTE MYELOID LEUKAEMIA RECURRENT
     Dosage: INTRAVENOUS
     Route: 042
     Dates: start: 20051213, end: 20051217
  4. DAUNORUBICIN HCL [Suspect]
     Indication: ACUTE MYELOID LEUKAEMIA RECURRENT
     Dosage: INTRAVENOUS
     Route: 042
     Dates: start: 20051213, end: 20051217
  5. DIFLUCAN [Concomitant]
  6. CLARITHROMYCIN [Concomitant]
  7. FAMOTIDINE [Concomitant]
  8. MUCOSTA (REBAMIPIDE) [Concomitant]
  9. FEPRAZONE (FEPRAZONE) [Concomitant]
  10. UNSPECIFIED ANTI-INFECTIVE AGENT (UNSPECIFIED ANTI-INFECTIVE AGENT) [Concomitant]
  11. CARBENIN (BETAMIPRON/PANIPENEM) [Concomitant]
  12. BIKLIN (AMIKACIN SULFATE) [Concomitant]
  13. UNASYN S (AMPICILLIN SODIUM/SULBACTAM SODIUM) [Concomitant]
  14. TARGOCID [Concomitant]

REACTIONS (16)
  - ASPARTATE AMINOTRANSFERASE INCREASED [None]
  - BLOOD ALKALINE PHOSPHATASE INCREASED [None]
  - BLOOD BILIRUBIN INCREASED [None]
  - BLOOD CALCIUM DECREASED [None]
  - BLOOD CREATININE INCREASED [None]
  - BLOOD LACTATE DEHYDROGENASE INCREASED [None]
  - BLOOD POTASSIUM DECREASED [None]
  - BLOOD UREA INCREASED [None]
  - GAMMA-GLUTAMYLTRANSFERASE INCREASED [None]
  - HEPATOMEGALY [None]
  - PERFORMANCE STATUS DECREASED [None]
  - PETECHIAE [None]
  - PLATELET COUNT DECREASED [None]
  - SEPSIS [None]
  - VENOOCCLUSIVE LIVER DISEASE [None]
  - WHITE BLOOD CELL COUNT DECREASED [None]
